FAERS Safety Report 17546408 (Version 2)
Quarter: 2020Q2

REPORT INFORMATION
  Report Type: Spontaneous
  Country: ES (occurrence: ES)
  Receive Date: 20200316
  Receipt Date: 20200608
  Transmission Date: 20200713
  Serious: Yes (Other)
  Sender: FDA-Public Use
  Company Number: ES-SHIRE-ES202008963

PATIENT

DRUGS (2)
  1. ADYNOVI [Suspect]
     Active Substance: ANTIHEMOPHILIC FACTOR, HUMAN RECOMBINANT
     Indication: PRODUCT USED FOR UNKNOWN INDICATION
     Dosage: 4000 INTERNATIONAL UNIT, INFUSION
     Route: 050
  2. ELOCTA [Concomitant]
     Active Substance: EFMOROCTOCOG ALFA
     Indication: PRODUCT USED FOR UNKNOWN INDICATION

REACTIONS (5)
  - Drug half-life reduced [Unknown]
  - Coagulation factor VIII level decreased [Unknown]
  - Drug ineffective [Unknown]
  - Muscle haemorrhage [Recovering/Resolving]
  - Haemarthrosis [Recovering/Resolving]
